FAERS Safety Report 4372660-5 (Version None)
Quarter: 2004Q2

REPORT INFORMATION
  Report Type: 
  Country: None (occurrence: None)
  Receive Date: 20040526
  Receipt Date: 20040514
  Transmission Date: 20050107
  Serious: Yes (Hospitalization)
  Sender: FDA-Public Use
  Company Number: 163-20785-04050369

PATIENT
  Age: 64 Year
  Sex: Male

DRUGS (1)
  1. THALOMID [Suspect]
     Indication: MULTIPLE MYELOMA
     Dosage: 200 MG, Q.D., ORAL
     Route: 048
     Dates: start: 20040421

REACTIONS (8)
  - DIALYSIS [None]
  - HUMERUS FRACTURE [None]
  - MUSCLE CRAMP [None]
  - PARAESTHESIA [None]
  - PARKINSON'S DISEASE [None]
  - RENAL DISORDER [None]
  - TREMOR [None]
  - URINARY TRACT INFECTION [None]
